FAERS Safety Report 9228161 (Version 2)
Quarter: 2013Q2

REPORT INFORMATION
  Report Type: Report from Study
  Country: US (occurrence: US)
  Receive Date: 20130412
  Receipt Date: 20130624
  Transmission Date: 20140414
  Serious: Yes (Death, Other)
  Sender: FDA-Public Use
  Company Number: US-ROCHE-1209361

PATIENT
  Sex: 0

DRUGS (3)
  1. ALTEPLASE [Suspect]
     Indication: ISCHAEMIC STROKE
     Route: 042
  2. ALTEPLASE [Suspect]
     Route: 013
  3. HEPARIN [Suspect]
     Indication: THROMBOSIS PROPHYLAXIS
     Dosage: 500 U/H
     Route: 065

REACTIONS (7)
  - Death [Fatal]
  - Pneumonia [Fatal]
  - Sepsis [Fatal]
  - Brain oedema [Fatal]
  - Drug ineffective [Fatal]
  - Drug effect decreased [Fatal]
  - Haemorrhage intracranial [Unknown]
